FAERS Safety Report 23196308 (Version 1)
Quarter: 2023Q4

REPORT INFORMATION
  Report Type: Spontaneous
  Country: US (occurrence: US)
  Receive Date: 20231117
  Receipt Date: 20231117
  Transmission Date: 20240110
  Serious: No
  Sender: FDA-Public Use
  Company Number: US-GLAXOSMITHKLINE-USCH2023054176

PATIENT
  Sex: Female

DRUGS (1)
  1. NICODERM CQ [Suspect]
     Active Substance: NICOTINE
     Indication: Product used for unknown indication
     Dosage: UNK

REACTIONS (6)
  - Application site erythema [Unknown]
  - Application site swelling [Unknown]
  - Vertigo [Unknown]
  - Rash erythematous [Unknown]
  - Inflammation [Unknown]
  - Nausea [Unknown]
